FAERS Safety Report 19642753 (Version 3)
Quarter: 2024Q1

REPORT INFORMATION
  Report Type: Spontaneous
  Country: US (occurrence: US)
  Receive Date: 20210730
  Receipt Date: 20240307
  Transmission Date: 20240410
  Serious: Yes (Other)
  Sender: FDA-Public Use
  Company Number: US-PFIZER INC-202100929544

PATIENT
  Age: 23 Year
  Sex: Male

DRUGS (1)
  1. XELJANZ XR [Suspect]
     Active Substance: TOFACITINIB CITRATE
     Indication: Colitis ulcerative
     Dosage: 11 MG, 1X/DAY
     Route: 048
     Dates: start: 202102

REACTIONS (2)
  - Haematochezia [Unknown]
  - Product dose omission in error [Unknown]
